FAERS Safety Report 9088864 (Version 1)
Quarter: 2013Q1

REPORT INFORMATION
  Report Type: Report from Study
  Country: US (occurrence: US)
  Receive Date: 20130201
  Receipt Date: 20130201
  Transmission Date: 20140127
  Serious: Yes (Hospitalization)
  Sender: FDA-Public Use
  Company Number: US-ABBOTT-12P-163-1029354-00

PATIENT
  Age: 72 None
  Sex: Female
  Weight: 61.74 kg

DRUGS (8)
  1. HUMIRA [Suspect]
     Indication: PSORIASIS
     Route: 058
     Dates: start: 201204
  2. ATENOLOL [Concomitant]
     Indication: HYPERTENSION
     Dosage: IN AM
  3. ATENOLOL [Concomitant]
     Indication: PALPITATIONS
  4. NAPROXEN [Concomitant]
     Indication: OSTEOARTHRITIS
  5. HYDROCHLOROTHIAZIDE [Concomitant]
     Indication: HYPERTENSION
  6. ZOLOFT [Concomitant]
     Indication: PAIN
  7. PROTONIX [Concomitant]
     Indication: PROPHYLAXIS
  8. PROTONIX [Concomitant]
     Indication: GASTROOESOPHAGEAL REFLUX DISEASE

REACTIONS (5)
  - Hypertension [Recovered/Resolved]
  - Chest pain [Recovered/Resolved]
  - Psoriasis [Recovered/Resolved]
  - Gastrooesophageal reflux disease [Unknown]
  - Anxiety [Unknown]
